FAERS Safety Report 14125605 (Version 1)
Quarter: 2017Q4

REPORT INFORMATION
  Report Type: Spontaneous
  Country: DE (occurrence: DE)
  Receive Date: 20171025
  Receipt Date: 20171025
  Transmission Date: 20180321
  Serious: Yes (Other)
  Sender: FDA-Public Use
  Company Number: DE-JNJFOC-20171028237

PATIENT
  Sex: Female
  Weight: 53 kg

DRUGS (6)
  1. CODEINE PHOSPHATE HEMIHYDRATE W/PARACETAMOL [Concomitant]
     Active Substance: ACETAMINOPHEN\CODEINE PHOSPHATE
     Indication: INFLAMMATION
     Route: 048
  2. TRAMAL [Suspect]
     Active Substance: TRAMADOL
     Indication: INFLAMMATION
     Route: 048
  3. DIAZEPAM. [Concomitant]
     Active Substance: DIAZEPAM
     Indication: SLEEP DISORDER
     Route: 065
  4. ZOPICLON [Concomitant]
     Active Substance: ZOPICLONE
     Indication: SLEEP DISORDER
     Route: 048
  5. TRAMAL [Suspect]
     Active Substance: TRAMADOL
     Indication: GASTROINTESTINAL PAIN
     Route: 048
  6. CODEINE PHOSPHATE HEMIHYDRATE W/PARACETAMOL [Concomitant]
     Active Substance: ACETAMINOPHEN\CODEINE PHOSPHATE
     Indication: GASTROINTESTINAL PAIN
     Route: 048

REACTIONS (3)
  - Drug dependence [Recovered/Resolved]
  - Fatigue [Recovered/Resolved]
  - Overdose [Unknown]
